FAERS Safety Report 10399599 (Version 1)
Quarter: 2014Q1

REPORT INFORMATION
  Report Type: Spontaneous
  Country: US (occurrence: None)
  Receive Date: 20130815
  Receipt Date: 20130815
  Transmission Date: 20141002
  Serious: Yes (Hospitalization, Other)
  Sender: FDA-Public Use
  Company Number: ADR-2012-02206

PATIENT
  Age: 71 Year
  Sex: Male

DRUGS (1)
  1. BACLOFEN [Suspect]
     Indication: CRANIOCEREBRAL INJURY
     Dosage: 35.97 MCG/DAY

REACTIONS (2)
  - Overdose [None]
  - Respiratory distress [None]
